FAERS Safety Report 12905708 (Version 2)
Quarter: 2016Q4

REPORT INFORMATION
  Report Type: Spontaneous
  Country: FR (occurrence: FR)
  Receive Date: 20161103
  Receipt Date: 20161110
  Transmission Date: 20170207
  Serious: Yes (Hospitalization, Other)
  Sender: FDA-Public Use
  Company Number: FR-ALVOGEN-2016-ALVOGEN-086207

PATIENT
  Age: 0 Day
  Sex: Male

DRUGS (5)
  1. CORTANCYL [Concomitant]
     Active Substance: PREDNISONE
     Indication: PROPHYLAXIS
     Route: 064
  2. TENORMIN [Suspect]
     Active Substance: ATENOLOL
     Indication: HYPERTENSION
     Route: 064
  3. IMUREL [Concomitant]
     Active Substance: AZATHIOPRINE SODIUM
     Indication: PROPHYLAXIS
     Dosage: DAILY
     Route: 064
  4. PROGRAF [Concomitant]
     Active Substance: TACROLIMUS\TACROLIMUS ANHYDROUS
     Indication: PROPHYLAXIS
     Route: 064
  5. ASPEGIC [Concomitant]
     Active Substance: ASPIRIN DL-LYSINE
     Route: 064

REACTIONS (5)
  - Hypoglycaemia [Recovered/Resolved]
  - Foetal growth restriction [Not Recovered/Not Resolved]
  - Neutropenia neonatal [Unknown]
  - Hyperkalaemia [Unknown]
  - Foetal cardiac disorder [Unknown]

NARRATIVE: CASE EVENT DATE: 20161001
